FAERS Safety Report 9168682 (Version 1)
Quarter: 2013Q1

REPORT INFORMATION
  Report Type: Spontaneous
  Country: JP (occurrence: None)
  Receive Date: 20130305
  Receipt Date: 20130305
  Transmission Date: 20140127
  Serious: Yes (Hospitalization)
  Sender: FDA-Public Use
  Company Number: ABR_00850_2013

PATIENT
  Age: 65 Year
  Sex: Female

DRUGS (6)
  1. ERYTHROCIN [Suspect]
     Indication: POSTOPERATIVE WOUND INFECTION
     Route: 048
     Dates: start: 20130126, end: 20130213
  2. TARGOCID [Suspect]
     Indication: POSTOPERATIVE WOUND INFECTION
     Route: 042
     Dates: start: 20130131, end: 20130213
  3. RIFAMPICIN [Suspect]
     Indication: POSTOPERATIVE WOUND INFECTION
     Route: 048
     Dates: start: 20130127, end: 20130213
  4. WARFARIN POTASSIUM [Concomitant]
  5. ASPIRIN [Concomitant]
  6. MAGNESIUM OXIDE [Concomitant]

REACTIONS (1)
  - Thrombocytopenia [None]
